FAERS Safety Report 12383211 (Version 7)
Quarter: 2017Q2

REPORT INFORMATION
  Report Type: Spontaneous
  Country: US (occurrence: US)
  Receive Date: 20160518
  Receipt Date: 20170424
  Transmission Date: 20170830
  Serious: Yes (Death, Other)
  Sender: FDA-Public Use
  Company Number: US-PFIZER INC-2016264083

PATIENT
  Age: 54 Year
  Sex: Female
  Weight: 55.78 kg

DRUGS (5)
  1. IBRANCE [Suspect]
     Active Substance: PALBOCICLIB
     Dosage: 75 MG, CYCLIC (1 D-21 D Q 28D)
     Route: 048
     Dates: start: 20160426, end: 20170403
  2. IBRANCE [Suspect]
     Active Substance: PALBOCICLIB
     Dosage: 100 MG, CYCLIC [DAYS 1-21 Q28 DAYS]
     Route: 048
     Dates: start: 20160426
  3. IBRANCE [Suspect]
     Active Substance: PALBOCICLIB
     Indication: BREAST CANCER METASTATIC
     Dosage: 100 MG, CYCLIC (DAYS1-21 EVERY 28DAYS)
     Route: 048
     Dates: start: 20160426
  4. IBRANCE [Suspect]
     Active Substance: PALBOCICLIB
     Dosage: 100 MG, CYCLIC (DAYS1-21 EVERY 28DAYS)
     Route: 048
     Dates: start: 20160426
  5. IBRANCE [Suspect]
     Active Substance: PALBOCICLIB
     Dosage: 100 MG, CYCLIC (D1-21Q 28DAYS)
     Route: 048
     Dates: start: 20161221

REACTIONS (7)
  - Death [Fatal]
  - Nausea [Unknown]
  - Headache [Recovered/Resolved]
  - Lethargy [Unknown]
  - White blood cell count decreased [Unknown]
  - Asthenia [Unknown]
  - Full blood count decreased [Unknown]

NARRATIVE: CASE EVENT DATE: 20160426
